FAERS Safety Report 12959662 (Version 1)
Quarter: 2016Q4

REPORT INFORMATION
  Report Type: Spontaneous
  Country: US (occurrence: US)
  Receive Date: 20161118
  Receipt Date: 20161118
  Transmission Date: 20170207
  Serious: Yes (Disabling)
  Sender: FDA-Public Use
  Company Number: None

PATIENT
  Age: 60 Year
  Sex: Female
  Weight: 63.9 kg

DRUGS (5)
  1. CHLORTHALIDONE 25 MG TABLETS [Suspect]
     Active Substance: CHLORTHALIDONE
     Indication: HYPERTENSION
     Dosage: ?          QUANTITY:0.5 TABLET(S);?
     Route: 048
     Dates: start: 20160116, end: 20161118
  2. CHLORTHALIDONE 25 MG TABLETS [Suspect]
     Active Substance: CHLORTHALIDONE
     Indication: CHRONIC KIDNEY DISEASE
     Dosage: ?          QUANTITY:0.5 TABLET(S);?
     Route: 048
     Dates: start: 20160116, end: 20161118
  3. MAGNESIUM CITRATE. [Concomitant]
     Active Substance: MAGNESIUM CITRATE
  4. CRANBERRY SUPPLEMENT [Concomitant]
  5. INFLAVONOID [Concomitant]

REACTIONS (3)
  - Joint stiffness [None]
  - Joint range of motion decreased [None]
  - Arthralgia [None]

NARRATIVE: CASE EVENT DATE: 20160529
